FAERS Safety Report 9316742 (Version 2)
Quarter: 2013Q2

REPORT INFORMATION
  Report Type: Spontaneous
  Country: US (occurrence: None)
  Receive Date: 20130522
  Receipt Date: 20130610
  Transmission Date: 20140414
  Serious: Yes (Death)
  Sender: FDA-Public Use
  Company Number: UTC-032706

PATIENT
  Age: 71 Year
  Sex: Female
  Weight: 80.9 kg

DRUGS (4)
  1. REMODULIN (10 MILLIGRAM/MILLILITERS, INJECTION FOR INFUSION) (TREPROSTINIL SODIUM) [Suspect]
     Indication: PULMONARY ARTERIAL HYPERTENSION
     Dosage: (1 IN 1 MIN)
     Route: 058
     Dates: start: 20100811
  2. ADCIRCA)TADALAFIL) (UNKNOWN) [Concomitant]
  3. RITUXAN (RITUXIMAB) [Concomitant]
  4. OXYGEN [Concomitant]

REACTIONS (4)
  - Sudden cardiac death [None]
  - Renal failure chronic [None]
  - Unresponsive to stimuli [None]
  - Pulse absent [None]
